FAERS Safety Report 4791916-5 (Version None)
Quarter: 2005Q4

REPORT INFORMATION
  Report Type: 
  Country: None (occurrence: None)
  Receive Date: 20051005
  Receipt Date: 20050920
  Transmission Date: 20060501
  Serious: Yes (Death, Hospitalization)
  Sender: FDA-Public Use
  Company Number: 2005-01832

PATIENT
  Age: 76 Year
  Sex: Female
  Weight: 58 kg

DRUGS (3)
  1. VELCADE [Suspect]
     Indication: MULTIPLE MYELOMA
     Dosage: 1.50 MG, INTRAVENOUS
     Route: 042
     Dates: start: 20050630, end: 20050812
  2. NOVALGIN (METAMIZOLE SODIUM) [Concomitant]
  3. TEMGESIC (BUPRENORPHINE HYDROCHLORIDE) [Concomitant]

REACTIONS (4)
  - ARTHRALGIA [None]
  - DEHYDRATION [None]
  - DISEASE PROGRESSION [None]
  - GENERAL PHYSICAL HEALTH DETERIORATION [None]
